FAERS Safety Report 4656423-9 (Version None)
Quarter: 2005Q2

REPORT INFORMATION
  Report Type: 
  Country: None (occurrence: None)
  Receive Date: 20050504
  Receipt Date: 20050418
  Transmission Date: 20051028
  Serious: No
  Sender: FDA-Public Use
  Company Number: 2005GB00774

PATIENT

DRUGS (1)
  1. NEXIUM [Suspect]

REACTIONS (1)
  - NEUTROPENIA [None]
